FAERS Safety Report 20050413 (Version 1)
Quarter: 2021Q4

REPORT INFORMATION
  Report Type: Spontaneous
  Country: BR (occurrence: BR)
  Receive Date: 20211109
  Receipt Date: 20211109
  Transmission Date: 20220303
  Serious: Yes (Death, Life-Threatening, Other)
  Sender: FDA-Public Use
  Company Number: None

PATIENT
  Age: 23 Year
  Sex: Male
  Weight: 60 kg

DRUGS (1)
  1. CUBICIN [Suspect]
     Active Substance: DAPTOMYCIN
     Dosage: 500 MILLIGRAM, Q24H
     Route: 042
     Dates: start: 20181213, end: 20181222

REACTIONS (1)
  - Blood creatine phosphokinase increased [Fatal]

NARRATIVE: CASE EVENT DATE: 20181215
